FAERS Safety Report 17284208 (Version 1)
Quarter: 2020Q1

REPORT INFORMATION
  Report Type: Spontaneous
  Country: GB (occurrence: GB)
  Receive Date: 20200117
  Receipt Date: 20200117
  Transmission Date: 20200409
  Serious: Yes (Other)
  Sender: FDA-Public Use
  Company Number: NVSC2020GB009039

PATIENT
  Age: 66 Year
  Sex: Male

DRUGS (1)
  1. AZITHROMYCIN ANHYDROUS. [Suspect]
     Active Substance: AZITHROMYCIN ANHYDROUS
     Indication: PRODUCT USED FOR UNKNOWN INDICATION
     Dosage: 2250 MG, QW (PATIENT TOOK 3 TABLETS ON MONDAY, WEDNESDAY AND FRIDAY THEN 3 EXTRA ON MONDAY)
     Route: 048
     Dates: start: 20180115, end: 20180122

REACTIONS (2)
  - Myalgia [Unknown]
  - Visual impairment [Unknown]

NARRATIVE: CASE EVENT DATE: 20180122
